FAERS Safety Report 12665483 (Version 13)
Quarter: 2018Q1

REPORT INFORMATION
  Report Type: Report from Study
  Country: US (occurrence: US)
  Receive Date: 20160818
  Receipt Date: 20180302
  Transmission Date: 20180508
  Serious: Yes (Hospitalization, Other)
  Sender: FDA-Public Use
  Company Number: US-ACTELION-A-US2015-129061

PATIENT
  Age: 76 Year
  Sex: Female
  Weight: 68.27 kg

DRUGS (7)
  1. OPSUMIT [Suspect]
     Active Substance: MACITENTAN
     Dosage: 10 MG, QD
     Route: 048
  2. ADCIRCA [Concomitant]
     Active Substance: TADALAFIL
  3. OPSUMIT [Suspect]
     Active Substance: MACITENTAN
     Indication: PULMONARY ARTERIAL HYPERTENSION
     Dosage: 10 MG, QD
     Route: 048
     Dates: start: 20150724
  4. ADEMPAS [Concomitant]
     Active Substance: RIOCIGUAT
     Dosage: 0.5 MG, TID
  5. TYVASO [Concomitant]
     Active Substance: TREPROSTINIL
     Dosage: UNK
  6. ADEMPAS [Concomitant]
     Active Substance: RIOCIGUAT
     Dosage: 2 MG, TID
  7. COUMADIN [Concomitant]
     Active Substance: WARFARIN SODIUM

REACTIONS (29)
  - Haemoglobin decreased [Unknown]
  - Femur fracture [Unknown]
  - Hip fracture [Unknown]
  - Pneumonia [Unknown]
  - Erythema [Unknown]
  - Dyspnoea [Unknown]
  - Dyspnoea exertional [Unknown]
  - Abdominal discomfort [Unknown]
  - Transfusion [Unknown]
  - Fluid retention [Unknown]
  - Oedema [Unknown]
  - Eye contusion [Unknown]
  - Headache [Unknown]
  - Oedema peripheral [Unknown]
  - Dialysis [Unknown]
  - Fall [Unknown]
  - Contusion [Unknown]
  - Bone marrow failure [Unknown]
  - Dialysis device insertion [Unknown]
  - Frequent bowel movements [Unknown]
  - Lung disorder [Unknown]
  - Chest pain [Unknown]
  - Implant site hypoaesthesia [Unknown]
  - Colonoscopy [Unknown]
  - Cellulitis [Unknown]
  - Carpal tunnel syndrome [Unknown]
  - Hip arthroplasty [Unknown]
  - Therapy cessation [Unknown]
  - Chest discomfort [Unknown]

NARRATIVE: CASE EVENT DATE: 20151214
